FAERS Safety Report 8833026 (Version 2)
Quarter: 2013Q1

REPORT INFORMATION
  Report Type: Report from Study
  Country: DE (occurrence: BE)
  Receive Date: 20121010
  Receipt Date: 20130226
  Transmission Date: 20140127
  Serious: Yes (Hospitalization, Other)
  Sender: FDA-Public Use
  Company Number: DE-ACTELION-A-US2012-71360

PATIENT
  Age: 54 Year
  Sex: Female

DRUGS (1)
  1. VENTAVIS [Suspect]
     Indication: PULMONARY HYPERTENSION
     Route: 055

REACTIONS (7)
  - Anaemia [Unknown]
  - Depression [Unknown]
  - Heart and lung transplant [Recovered/Resolved]
  - Pulmonary hypertension [Unknown]
  - Hypotension [Unknown]
  - Packed red blood cell transfusion [Unknown]
  - Diarrhoea [Unknown]
